FAERS Safety Report 17561807 (Version 1)
Quarter: 2020Q1

REPORT INFORMATION
  Report Type: Spontaneous
  Country: LB (occurrence: LB)
  Receive Date: 20200319
  Receipt Date: 20200319
  Transmission Date: 20200409
  Serious: No
  Sender: FDA-Public Use
  Company Number: LB-EMD SERONO-9150964

PATIENT
  Age: 25 Year
  Sex: Male

DRUGS (1)
  1. MAVENCLAD [Suspect]
     Active Substance: CLADRIBINE
     Indication: MULTIPLE SCLEROSIS
     Dosage: FIRST YEAR FIRST WEEK THERAPY. THE PATIENT RECEIVED 2 PILLS FOR 3 DAYS AND 1 PILL FOR 2 DAYS.
     Route: 048
     Dates: start: 20200213

REACTIONS (3)
  - Oropharyngeal pain [Unknown]
  - Hiccups [Not Recovered/Not Resolved]
  - Pyrexia [Unknown]

NARRATIVE: CASE EVENT DATE: 20200305
